FAERS Safety Report 23833218 (Version 1)
Quarter: 2024Q2

REPORT INFORMATION
  Report Type: Spontaneous
  Country: CA (occurrence: CA)
  Receive Date: 20240508
  Receipt Date: 20240508
  Transmission Date: 20240716
  Serious: Yes (Other)
  Sender: FDA-Public Use
  Company Number: CA-TEVA-VS-3195503

PATIENT
  Age: 21 Year
  Sex: Female

DRUGS (7)
  1. MONTELUKAST [Suspect]
     Active Substance: MONTELUKAST SODIUM
     Indication: Product used for unknown indication
     Route: 048
  2. BILASTINE [Suspect]
     Active Substance: BILASTINE
     Indication: Pruritus
     Dosage: DOSAGE FORM: NOT SPECIFIED
     Route: 065
  3. CLARITIN [Suspect]
     Active Substance: LORATADINE
     Indication: Pruritus
     Route: 065
  4. CLARITIN [Suspect]
     Active Substance: LORATADINE
     Indication: Pruritus
     Dosage: DOSAGE FORM: NOT SPECIFIED
     Route: 065
  5. PULMICORT TURBUHALER [Suspect]
     Active Substance: BUDESONIDE
     Indication: Dyspnoea
     Dosage: DOSAGE FORM: NOT SPECIFIED
     Route: 065
  6. RUPATADINE [Suspect]
     Active Substance: RUPATADINE
     Indication: Pruritus
     Route: 065
  7. RUPATADINE [Suspect]
     Active Substance: RUPATADINE
     Indication: Pruritus
     Route: 065

REACTIONS (4)
  - Chronic spontaneous urticaria [Unknown]
  - Angioedema [Unknown]
  - Dyspnoea [Unknown]
  - Urticaria [Unknown]
